FAERS Safety Report 4373773-4 (Version None)
Quarter: 2004Q2

REPORT INFORMATION
  Report Type: 
  Country: None (occurrence: None)
  Receive Date: 20040607
  Receipt Date: 20040607
  Transmission Date: 20050107
  Serious: No
  Sender: FDA-Public Use
  Company Number: None

PATIENT
  Age: 79 Year

DRUGS (1)
  1. DILTIAZEM [Suspect]

REACTIONS (2)
  - ANGINA PECTORIS [None]
  - PHARMACEUTICAL PRODUCT COMPLAINT [None]
